FAERS Safety Report 23021380 (Version 1)
Quarter: 2023Q4

REPORT INFORMATION
  Report Type: Spontaneous
  Country: US (occurrence: None)
  Receive Date: 20231003
  Receipt Date: 20231003
  Transmission Date: 20240110
  Serious: No
  Sender: FDA-Public Use
  Company Number: None

PATIENT
  Sex: Male

DRUGS (1)
  1. STELARA [Suspect]
     Active Substance: USTEKINUMAB
     Dosage: OTHER FREQUENCY : EVERY8WEEKS;?
     Route: 058
     Dates: start: 202201

REACTIONS (3)
  - Abdominal pain [None]
  - Crohn^s disease [None]
  - Drug ineffective [None]
